FAERS Safety Report 23198481 (Version 1)
Quarter: 2023Q4

REPORT INFORMATION
  Report Type: Spontaneous
  Country: CN (occurrence: CN)
  Receive Date: 20231117
  Receipt Date: 20231117
  Transmission Date: 20240110
  Serious: Yes (Other)
  Sender: FDA-Public Use
  Company Number: CN-PFIZER INC-PV202300186513

PATIENT
  Age: 65 Year
  Sex: Female
  Weight: 46.4 kg

DRUGS (3)
  1. TIGECYCLINE [Suspect]
     Active Substance: TIGECYCLINE
     Indication: Acute myeloid leukaemia
     Dosage: 100 MG, SINGLE
     Route: 041
     Dates: start: 20231029, end: 20231029
  2. TIGECYCLINE [Suspect]
     Active Substance: TIGECYCLINE
     Indication: Hypokalaemia
     Dosage: 50 MG, 2X/DAY
     Route: 041
     Dates: start: 20231029, end: 20231105
  3. TIGECYCLINE [Suspect]
     Active Substance: TIGECYCLINE
     Indication: Pneumonia

REACTIONS (2)
  - Abdominal distension [Recovering/Resolving]
  - Decreased appetite [Recovering/Resolving]

NARRATIVE: CASE EVENT DATE: 20231030
